FAERS Safety Report 5980561-1 (Version None)
Quarter: 2008Q4

REPORT INFORMATION
  Report Type: 
  Country: None (occurrence: None)
  Receive Date: 20081205
  Receipt Date: 20080122
  Transmission Date: 20090506
  Serious: No
  Sender: FDA-Public Use
  Company Number: A0704576A

PATIENT
  Age: 47 Year
  Sex: Male

DRUGS (1)
  1. COMMIT [Suspect]

REACTIONS (3)
  - DIZZINESS [None]
  - HICCUPS [None]
  - THROAT IRRITATION [None]
